FAERS Safety Report 4543934-X (Version None)
Quarter: 2005Q1

REPORT INFORMATION
  Report Type: 
  Country: None (occurrence: None)
  Receive Date: 20050103
  Receipt Date: 20040107
  Transmission Date: 20050727
  Serious: Yes (Hospitalization)
  Sender: FDA-Public Use
  Company Number: GXKR2004GB00501

PATIENT
  Age: 74 Year
  Sex: Female

DRUGS (1)
  1. FUROSEMIDE (NGX) (FUROSEMIDE) [Suspect]
     Dosage: 40 MG/DAILY
     Dates: end: 20031211

REACTIONS (4)
  - FALL [None]
  - FRACTURE [None]
  - METABOLIC ALKALOSIS [None]
  - RESPIRATORY TRACT INFECTION [None]
